APPROVED DRUG PRODUCT: HEPATASOL 8%
Active Ingredient: AMINO ACIDS
Strength: 8% (8GM/100ML)
Dosage Form/Route: INJECTABLE;INJECTION
Application: A020360 | Product #001
Applicant: BAXTER HEALTHCARE CORP
Approved: Apr 4, 1996 | RLD: No | RS: No | Type: DISCN